FAERS Safety Report 7790875-0 (Version None)
Quarter: 2011Q3

REPORT INFORMATION
  Report Type: 
  Country: None (occurrence: None)
  Receive Date: 20110930
  Receipt Date: 20110921
  Transmission Date: 20111222
  Serious: Yes (Hospitalization, Other)
  Sender: FDA-Public Use
  Company Number: US-ASTRAZENECA-2011SE17927

PATIENT
  Age: 57 Year
  Sex: Male

DRUGS (14)
  1. NEXIUM [Suspect]
     Route: 048
  2. CITALOPRAM HYDROBROMIDE [Concomitant]
  3. METFORMIN HCL [Concomitant]
  4. CELEBREX [Concomitant]
  5. ALBUTEROL [Concomitant]
  6. LIPITOR [Concomitant]
  7. SEROQUEL [Concomitant]
  8. CLONAZEPAM [Concomitant]
  9. ENALAPRIL MALEATE [Concomitant]
  10. AMITRIPTYLINE HYDROCHLORIDE [Concomitant]
  11. PERCOCET [Concomitant]
  12. DILTIAZEM HCL [Concomitant]
  13. HYDROCHLOROTHIAZIDE [Concomitant]
  14. RANITIDINE HYDROCHLORIDE [Concomitant]

REACTIONS (13)
  - SLEEP APNOEA SYNDROME [None]
  - HYPERLIPIDAEMIA [None]
  - HAEMATOCHEZIA [None]
  - NECROTISING FASCIITIS STAPHYLOCOCCAL [None]
  - OSTEOARTHRITIS [None]
  - HAEMATURIA [None]
  - OBESITY [None]
  - CHRONIC OBSTRUCTIVE PULMONARY DISEASE [None]
  - EMPHYSEMA [None]
  - HYPERTENSION [None]
  - DIABETES MELLITUS [None]
  - DEPRESSION [None]
  - PHAEOCHROMOCYTOMA [None]
